FAERS Safety Report 8192931-4 (Version None)
Quarter: 2012Q1

REPORT INFORMATION
  Report Type: 
  Country: None (occurrence: None)
  Receive Date: 20120308
  Receipt Date: 20120228
  Transmission Date: 20120608
  Serious: No
  Sender: FDA-Public Use
  Company Number: FR-JNJFOC-20120301434

PATIENT
  Age: 68 Year
  Sex: Female

DRUGS (3)
  1. CORTICOSTEROID [Concomitant]
     Route: 065
  2. REMICADE [Suspect]
     Indication: RHEUMATOID ARTHRITIS
     Route: 042
  3. METHOTREXATE [Concomitant]
     Route: 065

REACTIONS (1)
  - HERPES ZOSTER [None]
